FAERS Safety Report 9131804 (Version 1)
Quarter: 2013Q1

REPORT INFORMATION
  Report Type: Report from Study
  Country: US (occurrence: US)
  Receive Date: 20130301
  Receipt Date: 20130301
  Transmission Date: 20140127
  Serious: No
  Sender: FDA-Public Use
  Company Number: US-MYLANLABS-2012S1015265

PATIENT
  Age: 33 Year
  Sex: Male

DRUGS (1)
  1. AMNESTEEM CAPSULES [Suspect]
     Indication: ACNE
     Route: 048
     Dates: start: 201205, end: 201207

REACTIONS (4)
  - Oral herpes [Recovered/Resolved]
  - Chapped lips [Recovered/Resolved]
  - Dry eye [Recovered/Resolved]
  - Unevaluable event [Recovered/Resolved]
